APPROVED DRUG PRODUCT: DROPERIDOL
Active Ingredient: DROPERIDOL
Strength: 2.5MG/ML
Dosage Form/Route: INJECTABLE;INJECTION
Application: A208197 | Product #001 | TE Code: AP
Applicant: HIKMA PHARMACEUTICALS USA INC
Approved: Dec 14, 2017 | RLD: No | RS: No | Type: RX